FAERS Safety Report 11095056 (Version 1)
Quarter: 2015Q2

REPORT INFORMATION
  Report Type: Spontaneous
  Country: US (occurrence: US)
  Receive Date: 20150506
  Receipt Date: 20150506
  Transmission Date: 20150821
  Serious: No
  Sender: FDA-Public Use
  Company Number: US-SA-2014SA037922

PATIENT
  Age: 62 Year
  Sex: Male

DRUGS (4)
  1. APIDRA [Suspect]
     Active Substance: INSULIN GLULISINE
     Indication: TYPE 1 DIABETES MELLITUS
  2. APIDRA [Suspect]
     Active Substance: INSULIN GLULISINE
     Indication: TYPE 1 DIABETES MELLITUS
     Dosage: 1.3/4 VIALS
     Route: 065
     Dates: start: 2005
  3. APIDRA [Suspect]
     Active Substance: INSULIN GLULISINE
     Indication: TYPE 1 DIABETES MELLITUS
     Dosage: 1.3/4 VIALS
     Route: 065
     Dates: start: 2005
  4. APIDRA [Suspect]
     Active Substance: INSULIN GLULISINE
     Indication: TYPE 1 DIABETES MELLITUS
     Dosage: DOSAGE CONTINUOUS INFUSION, FREQUENCY CONTINUOUS.
     Route: 065
     Dates: start: 20120816

REACTIONS (2)
  - Blood glucose abnormal [Not Recovered/Not Resolved]
  - Therapeutic response delayed [Unknown]
